FAERS Safety Report 4640538-5 (Version None)
Quarter: 2005Q2

REPORT INFORMATION
  Report Type: 
  Country: None (occurrence: None)
  Receive Date: 20050419
  Receipt Date: 20050404
  Transmission Date: 20051028
  Serious: Yes (Death)
  Sender: FDA-Public Use
  Company Number: MK200504-0104-1

PATIENT
  Age: 36 Year
  Sex: Female

DRUGS (1)
  1. BAROSPERSE ENEMA KT 454GM/16OZ BARIUM SULFATE [Suspect]
     Indication: BARIUM ENEMA

REACTIONS (21)
  - BILIARY TRACT DISORDER [None]
  - BLOOD PRESSURE DECREASED [None]
  - BODY TEMPERATURE DECREASED [None]
  - CIRRHOSIS ALCOHOLIC [None]
  - COLITIS ULCERATIVE [None]
  - COLLAPSE OF LUNG [None]
  - EXTRAVASATION [None]
  - GASTROINTESTINAL OEDEMA [None]
  - HEART RATE INCREASED [None]
  - HEPATIC EMBOLISATION [None]
  - HEPATIC FAILURE [None]
  - INTESTINAL OBSTRUCTION [None]
  - PNEUMONIA [None]
  - PNEUMONITIS [None]
  - PNEUMOTHORAX [None]
  - PROCEDURAL COMPLICATION [None]
  - PSEUDOPOLYP [None]
  - PULMONARY OEDEMA [None]
  - RECTAL HAEMORRHAGE [None]
  - SEPSIS [None]
  - SHOCK [None]
